FAERS Safety Report 6525513-8 (Version None)
Quarter: 2010Q1

REPORT INFORMATION
  Report Type: 
  Country: None (occurrence: None)
  Receive Date: 20100104
  Receipt Date: 20091221
  Transmission Date: 20100710
  Serious: Yes (Other)
  Sender: FDA-Public Use
  Company Number: GB-PFIZER INC-2009312942

PATIENT
  Sex: Male

DRUGS (6)
  1. PHENYTOIN SODIUM CAP [Suspect]
     Indication: CONVULSION
     Dosage: 55 ML, 25ML MORNING, 30ML NIGHT
     Route: 048
  2. KEPPRA [Suspect]
     Indication: CONVULSION
     Dosage: 1500 MG, UNK
  3. TEGRETOL [Concomitant]
     Indication: EPILEPSY
  4. TOPAMAX [Concomitant]
     Indication: EPILEPSY
  5. RUFINAMIDE [Concomitant]
     Indication: EPILEPSY
  6. NITRAZEPAM [Concomitant]
     Indication: EPILEPSY

REACTIONS (1)
  - LETHARGY [None]
